FAERS Safety Report 7654242-2 (Version None)
Quarter: 2011Q3

REPORT INFORMATION
  Report Type: 
  Country: None (occurrence: None)
  Receive Date: 20110802
  Receipt Date: 20110802
  Transmission Date: 20111222
  Serious: Yes (Other)
  Sender: FDA-Public Use
  Company Number: None

PATIENT

DRUGS (4)
  1. ZONEGRAN [Concomitant]
  2. KEPPRA [Concomitant]
  3. LAMOTRIGINE [Suspect]
     Indication: CONVULSION
     Dosage: 100 3 BID PO
     Route: 048
     Dates: start: 20110725, end: 20110730
  4. DIASTAT [Concomitant]

REACTIONS (1)
  - CONVULSION [None]
